FAERS Safety Report 8614527-X (Version None)
Quarter: 2012Q3

REPORT INFORMATION
  Report Type: 
  Country: None (occurrence: None)
  Receive Date: 20120823
  Receipt Date: 20120816
  Transmission Date: 20120928
  Serious: Yes (Hospitalization, Other)
  Sender: FDA-Public Use
  Company Number: PHHY2012BR042853

PATIENT
  Sex: Female

DRUGS (9)
  1. DIOVAN [Suspect]
     Indication: HYPERTENSION
     Dosage: 80 MG, UNK
     Dates: start: 20120501, end: 20120601
  2. LEVOTHYROXINE SODIUM [Concomitant]
     Indication: THYROID DISORDER
     Dosage: 1 DF,DAILY
     Route: 048
  3. LASIX [Concomitant]
     Dosage: 2 DF, DAILY
     Route: 048
  4. METFORMIN HCL [Concomitant]
     Indication: BLOOD INSULIN ABNORMAL
     Dosage: 500 MG, TID
     Route: 048
  5. APRESOLINE [Concomitant]
     Dosage: 50 MG, TID
     Route: 048
  6. DIOVAN [Suspect]
     Indication: HYPERTENSION
     Dosage: 160 MG VALS, 10 MG AMLO AND 12.5 MG HYDRO, ONE DAILY
     Route: 048
  7. AMLODIPINE [Concomitant]
     Dosage: 2 DF, QD
  8. DIOVAN [Suspect]
     Dosage: 2 DF, DAILY
     Route: 048
     Dates: end: 20120501
  9. ASPIRIN [Concomitant]
     Dosage: 100 MG,(1 TABLET )
     Route: 048

REACTIONS (5)
  - DIABETES MELLITUS [None]
  - RENAL FAILURE [None]
  - CARDIAC FAILURE ACUTE [None]
  - EMPHYSEMA [None]
  - RESPIRATORY FAILURE [None]
